FAERS Safety Report 7280042-1 (Version None)
Quarter: 2011Q1

REPORT INFORMATION
  Report Type: 
  Country: None (occurrence: None)
  Receive Date: 20110203
  Receipt Date: 20110203
  Transmission Date: 20110831
  Serious: Yes (Other)
  Sender: FDA-Public Use
  Company Number: None

PATIENT
  Age: 62 Year
  Sex: Male
  Weight: 97.5234 kg

DRUGS (1)
  1. LEVITRA [Suspect]
     Indication: ERECTILE DYSFUNCTION
     Dosage: 2-10MG TABS ONCE PO
     Route: 048
     Dates: start: 20110128, end: 20110128

REACTIONS (8)
  - NAUSEA [None]
  - DIZZINESS [None]
  - PALPITATIONS [None]
  - SYNCOPE [None]
  - LOSS OF CONSCIOUSNESS [None]
  - ASTHENIA [None]
  - HYPERHIDROSIS [None]
  - FEELING ABNORMAL [None]
